FAERS Safety Report 13067898 (Version 1)
Quarter: 2016Q4

REPORT INFORMATION
  Report Type: Spontaneous
  Country: GB (occurrence: GB)
  Receive Date: 20161228
  Receipt Date: 20161228
  Transmission Date: 20170207
  Serious: Yes (Disabling)
  Sender: FDA-Public Use
  Company Number: GB-TEVA-721851ACC

PATIENT
  Age: 73 Year
  Sex: Male
  Weight: 88 kg

DRUGS (1)
  1. MORPHINE SULFATE. [Suspect]
     Active Substance: MORPHINE SULFATE
     Route: 048
     Dates: start: 20161208

REACTIONS (2)
  - Oral discomfort [Unknown]
  - Throat irritation [Recovering/Resolving]

NARRATIVE: CASE EVENT DATE: 20161208
